FAERS Safety Report 4318459-7 (Version None)
Quarter: 2004Q1

REPORT INFORMATION
  Report Type: 
  Country: None (occurrence: None)
  Receive Date: 20040315
  Receipt Date: 20040305
  Transmission Date: 20041129
  Serious: Yes (Hospitalization, Disabling)
  Sender: FDA-Public Use
  Company Number: 2004202680JP

PATIENT
  Age: 61 Year
  Sex: Female

DRUGS (4)
  1. HYSRON-H200(MEDROXYPROGESTERONE ACETATE) TABLET, 100-500MG [Suspect]
     Indication: BREAST CANCER
     Dosage: 1200 MG, ORAL
     Route: 048
     Dates: start: 20040205, end: 20040208
  2. XELODA [Concomitant]
  3. GASTER [Concomitant]
  4. PAROXETINE HCL [Concomitant]

REACTIONS (1)
  - OPTIC NEURITIS RETROBULBAR [None]
